FAERS Safety Report 7720902-8 (Version None)
Quarter: 2011Q3

REPORT INFORMATION
  Report Type: 
  Country: None (occurrence: None)
  Receive Date: 20110831
  Receipt Date: 20110816
  Transmission Date: 20111222
  Serious: No
  Sender: FDA-Public Use
  Company Number: US-B.I. PHARMACEUTICALS,INC./RIDGEFIELD-2011-BP-20101BP

PATIENT
  Sex: Female

DRUGS (2)
  1. SPIRIVA [Suspect]
     Indication: PNEUMONIA
     Dosage: 18 MCG
     Dates: start: 20110301
  2. TOPAMAX [Concomitant]
     Indication: MIGRAINE
     Dosage: 25 MG
     Route: 048

REACTIONS (1)
  - DYSPNOEA [None]
